FAERS Safety Report 5574826-5 (Version None)
Quarter: 2007Q4

REPORT INFORMATION
  Report Type: 
  Country: None (occurrence: None)
  Receive Date: 20071221
  Receipt Date: 20071221
  Transmission Date: 20080405
  Serious: No
  Sender: FDA-Public Use
  Company Number: None

PATIENT
  Age: 30 Year
  Sex: Male
  Weight: 83.9154 kg

DRUGS (4)
  1. ABILIFY [Suspect]
     Indication: AGORAPHOBIA
     Dosage: 10 MG 2X PER DAY PO
     Route: 048
     Dates: start: 20021115, end: 20030830
  2. ABILIFY [Suspect]
     Indication: ANXIETY
     Dosage: 10 MG 2X PER DAY PO
     Route: 048
     Dates: start: 20021115, end: 20030830
  3. ABILIFY [Suspect]
     Indication: DEPRESSION
     Dosage: 10 MG 2X PER DAY PO
     Route: 048
     Dates: start: 20021115, end: 20030830
  4. ABILIFY [Suspect]
     Indication: PANIC DISORDER
     Dosage: 10 MG 2X PER DAY PO
     Route: 048
     Dates: start: 20021115, end: 20030830

REACTIONS (8)
  - CONVULSION [None]
  - DYSKINESIA [None]
  - FACIAL SPASM [None]
  - FALL [None]
  - MUSCLE DISORDER [None]
  - MUSCLE SPASMS [None]
  - MUSCLE TWITCHING [None]
  - TREMOR [None]
